FAERS Safety Report 4680643-0 (Version None)
Quarter: 2005Q2

REPORT INFORMATION
  Report Type: 
  Country: None (occurrence: None)
  Receive Date: 20050531
  Receipt Date: 20050425
  Transmission Date: 20051028
  Serious: No
  Sender: FDA-Public Use
  Company Number: WAES 0504USA04344

PATIENT
  Age: 56 Year
  Sex: Female

DRUGS (5)
  1. ZETIA [Suspect]
     Indication: HYPERCHOLESTEROLAEMIA
     Dosage: 10 MG/DAILY/PO
     Route: 048
     Dates: start: 20041201, end: 20050301
  2. BENTYL [Concomitant]
  3. PEPCID [Concomitant]
  4. XANAX [Concomitant]
  5. IMIPRAMINE HCL [Concomitant]

REACTIONS (1)
  - MUSCULAR WEAKNESS [None]
